FAERS Safety Report 18330132 (Version 1)
Quarter: 2020Q3

REPORT INFORMATION
  Report Type: Spontaneous
  Country: US (occurrence: US)
  Receive Date: 20200930
  Receipt Date: 20200930
  Transmission Date: 20201103
  Serious: No
  Sender: FDA-Public Use
  Company Number: US-PFIZER INC-2020377328

PATIENT
  Age: 53 Year
  Sex: Female

DRUGS (1)
  1. XELJANZ XR [Suspect]
     Active Substance: TOFACITINIB CITRATE
     Dosage: 11 MG
     Dates: start: 202009

REACTIONS (6)
  - Immune system disorder [Unknown]
  - Decreased appetite [Unknown]
  - Malaise [Recovering/Resolving]
  - Asthenia [Unknown]
  - Full blood count decreased [Unknown]
  - Diarrhoea [Unknown]
